FAERS Safety Report 7564980-8 (Version None)
Quarter: 2011Q2

REPORT INFORMATION
  Report Type: 
  Country: None (occurrence: None)
  Receive Date: 20110622
  Receipt Date: 20110330
  Transmission Date: 20111010
  Serious: Yes (Other)
  Sender: FDA-Public Use
  Company Number: US-MYLANLABS-2011S1005293

PATIENT
  Age: 16 Year
  Sex: Male
  Weight: 61.7 kg

DRUGS (3)
  1. LITHIUM CARBONATE [Concomitant]
     Route: 048
     Dates: start: 20110222
  2. CLOZAPINE [Suspect]
     Indication: BIPOLAR DISORDER
     Route: 048
     Dates: start: 20110221, end: 20110308
  3. CLOZAPINE [Suspect]
     Indication: PSYCHOTIC DISORDER
     Route: 048
     Dates: start: 20110221, end: 20110308

REACTIONS (2)
  - GRANULOCYTOPENIA [None]
  - WHITE BLOOD CELL COUNT DECREASED [None]
